FAERS Safety Report 20555011 (Version 1)
Quarter: 2022Q1

REPORT INFORMATION
  Report Type: Spontaneous
  Country: US (occurrence: US)
  Receive Date: 20220304
  Receipt Date: 20220304
  Transmission Date: 20220423
  Serious: Yes (Other)
  Sender: FDA-Public Use
  Company Number: US-009507513-2203USA001684

PATIENT
  Age: 69 Year
  Sex: Female

DRUGS (2)
  1. KEYTRUDA [Suspect]
     Active Substance: PEMBROLIZUMAB
     Indication: Uterine cancer
     Dosage: UNK
     Dates: end: 20220216
  2. LENVATINIB MESYLATE [Suspect]
     Active Substance: LENVATINIB MESYLATE
     Indication: Uterine cancer
     Dosage: 20 MILLIGRAM, QD
     Route: 048
     Dates: start: 20220203, end: 20220216

REACTIONS (10)
  - Hepatotoxicity [Unknown]
  - Confusional state [Recovered/Resolved]
  - Head discomfort [Recovered/Resolved]
  - Neck pain [Recovered/Resolved]
  - Dysphonia [Recovering/Resolving]
  - Appetite disorder [Recovering/Resolving]
  - Malaise [Recovered/Resolved]
  - Headache [Unknown]
  - Blood pressure increased [Unknown]
  - Dizziness [Unknown]

NARRATIVE: CASE EVENT DATE: 20220201
